FAERS Safety Report 15383390 (Version 1)
Quarter: 2018Q3

REPORT INFORMATION
  Report Type: Spontaneous
  Country: EG (occurrence: EG)
  Receive Date: 20180913
  Receipt Date: 20180913
  Transmission Date: 20181010
  Serious: Yes (Other)
  Sender: FDA-Public Use
  Company Number: EG-NOVOPROD-621010

PATIENT
  Sex: Female
  Weight: 77 kg

DRUGS (2)
  1. MIXTARD PENFILL [Suspect]
     Active Substance: INSULIN HUMAN
     Indication: PRODUCT USED FOR UNKNOWN INDICATION
     Dosage: 50 IU, QD (TWO INJECTIONS PER DAY 30IU AND 20IU , STARTED IN 2010)
     Route: 058
     Dates: start: 2010, end: 20180905
  2. MILGA [Concomitant]
     Dosage: ONCE
     Route: 048
     Dates: start: 20180905

REACTIONS (3)
  - Diabetic foot [Recovered/Resolved]
  - Hypoaesthesia [Not Recovered/Not Resolved]
  - Glycosylated haemoglobin increased [Not Recovered/Not Resolved]

NARRATIVE: CASE EVENT DATE: 201809
